FAERS Safety Report 4549379-0 (Version None)
Quarter: 2005Q1

REPORT INFORMATION
  Report Type: 
  Country: None (occurrence: None)
  Receive Date: 20050106
  Receipt Date: 20050104
  Transmission Date: 20050727
  Serious: Yes (Hospitalization)
  Sender: FDA-Public Use
  Company Number: 200410233GDS

PATIENT
  Sex: Female

DRUGS (4)
  1. AVELOX [Suspect]
     Dosage: ORAL
     Route: 048
  2. GLUCOPHAGE [Concomitant]
  3. AVANDIA [Concomitant]
  4. INSULIN [Concomitant]

REACTIONS (1)
  - HYPOGLYCAEMIA [None]
